FAERS Safety Report 18155743 (Version 1)
Quarter: 2020Q3

REPORT INFORMATION
  Report Type: Spontaneous
  Country: US (occurrence: US)
  Receive Date: 20200814
  Receipt Date: 20200814
  Transmission Date: 20201103
  Serious: No
  Sender: FDA-Public Use
  Company Number: None

PATIENT
  Sex: Female
  Weight: 54 kg

DRUGS (3)
  1. HAIR NAILS AND SKIN VITAMIN DAILY [Concomitant]
  2. ZOMIG [Concomitant]
     Active Substance: ZOLMITRIPTAN
  3. AIMOVIG [Suspect]
     Active Substance: ERENUMAB-AOOE
     Indication: MIGRAINE
     Dosage: ?          QUANTITY:1 INJECTION(S);OTHER FREQUENCY:MONTH;?
     Route: 058
     Dates: start: 20191010, end: 20200415

REACTIONS (7)
  - Fatigue [None]
  - Menstruation irregular [None]
  - Heart rate increased [None]
  - Tinnitus [None]
  - Eczema [None]
  - Alopecia [None]
  - Pain of skin [None]
